FAERS Safety Report 4838993-0 (Version None)
Quarter: 2005Q4

REPORT INFORMATION
  Report Type: 
  Country: None (occurrence: None)
  Receive Date: 20051129
  Receipt Date: 20051118
  Transmission Date: 20060501
  Serious: Yes (Other)
  Sender: FDA-Public Use
  Company Number: US-JNJFOC-20051104953

PATIENT
  Sex: Female

DRUGS (12)
  1. REMICADE [Suspect]
     Indication: RHEUMATOID ARTHRITIS
     Route: 042
  2. MOBIC [Concomitant]
     Route: 048
  3. LOPRESSOR [Concomitant]
     Route: 048
  4. METHOTREXATE [Concomitant]
     Route: 048
  5. LIPITOR [Concomitant]
     Route: 048
  6. DIURIL [Concomitant]
     Route: 048
  7. PRILOSEC [Concomitant]
     Route: 048
  8. VICODIN [Concomitant]
     Route: 048
  9. VICODIN [Concomitant]
     Dosage: DOSE 5/500 PO QD OR BID
     Route: 048
  10. DITROPAN XL [Concomitant]
     Route: 048
  11. ACTONEL [Concomitant]
     Route: 048
  12. CALCIUM GLUCONATE [Concomitant]
     Route: 048

REACTIONS (1)
  - LUPUS-LIKE SYNDROME [None]
